FAERS Safety Report 5445570-X (Version None)
Quarter: 2007Q3

REPORT INFORMATION
  Report Type: 
  Country: None (occurrence: None)
  Receive Date: 20070906
  Receipt Date: 20070823
  Transmission Date: 20080115
  Serious: Yes (Death)
  Sender: FDA-Public Use
  Company Number: DE-GENENTECH-247092

PATIENT
  Sex: Female
  Weight: 66 kg

DRUGS (2)
  1. TRASTUZUMAB [Suspect]
     Indication: BREAST CANCER METASTATIC
     Dosage: 2 MG, 1/WEEK
     Route: 042
     Dates: start: 20070725
  2. PACLITAXEL [Suspect]
     Indication: BREAST CANCER METASTATIC
     Dosage: 80 MG, 1/WEEK
     Route: 042
     Dates: start: 20070725

REACTIONS (1)
  - DEATH [None]
